FAERS Safety Report 18883880 (Version 1)
Quarter: 2021Q1

REPORT INFORMATION
  Report Type: Spontaneous
  Country: US (occurrence: US)
  Receive Date: 20210211
  Receipt Date: 20210211
  Transmission Date: 20210420
  Serious: Yes (Hospitalization, Other)
  Sender: FDA-Public Use
  Company Number: US-ELI_LILLY_AND_COMPANY-US202102000764

PATIENT
  Age: 58 Year
  Sex: Female

DRUGS (1)
  1. HUMALOG [Suspect]
     Active Substance: INSULIN LISPRO
     Indication: PRODUCT USED FOR UNKNOWN INDICATION
     Dosage: 70 U, DAILY
     Route: 065
     Dates: start: 2009

REACTIONS (6)
  - Dysphagia [Not Recovered/Not Resolved]
  - Diabetic complication [Unknown]
  - Fatigue [Not Recovered/Not Resolved]
  - Visual impairment [Unknown]
  - COVID-19 [Recovering/Resolving]
  - Blindness unilateral [Unknown]

NARRATIVE: CASE EVENT DATE: 20201004
